FAERS Safety Report 7234901-6 (Version None)
Quarter: 2011Q1

REPORT INFORMATION
  Report Type: 
  Country: None (occurrence: None)
  Receive Date: 20110120
  Receipt Date: 20110119
  Transmission Date: 20110831
  Serious: No
  Sender: FDA-Public Use
  Company Number: US-PFIZER INC-2010138090

PATIENT
  Sex: Female

DRUGS (5)
  1. LYRICA [Suspect]
     Dosage: UNK
  2. ALEVE [Suspect]
     Dosage: UNK
  3. ADVIL LIQUI-GELS [Suspect]
     Dosage: UNK
  4. BENADRYL [Suspect]
     Dosage: UNK
  5. AMITRIPTYLINE HCL [Suspect]
     Dosage: UNK

REACTIONS (1)
  - DRUG INEFFECTIVE [None]
